FAERS Safety Report 12103896 (Version 1)
Quarter: 2016Q1

REPORT INFORMATION
  Report Type: Spontaneous
  Country: ES (occurrence: ES)
  Receive Date: 20160223
  Receipt Date: 20160223
  Transmission Date: 20160526
  Serious: Yes (Other)
  Sender: FDA-Public Use
  Company Number: ES-PFIZER INC-2016082939

PATIENT
  Age: 73 Year
  Sex: Male

DRUGS (3)
  1. ATORVASTATIN [Concomitant]
     Active Substance: ATORVASTATIN
     Dosage: UNK
  2. LYRICA [Suspect]
     Active Substance: PREGABALIN
     Indication: BACK PAIN
     Dosage: 75 MG, 1X/DAY
     Dates: start: 201602, end: 20160205
  3. INZITAN [Concomitant]
     Active Substance: CYANOCOBALAMIN\DEXAMETHASONE\LIDOCAINE HYDROCHLORIDE\THIAMINE HYDROCHLORIDE
     Dosage: UNK

REACTIONS (14)
  - Depression [Unknown]
  - Dyspnoea [Unknown]
  - Tremor [Unknown]
  - Glossodynia [Unknown]
  - Pharyngeal disorder [Unknown]
  - Paraesthesia [Unknown]
  - Tongue dry [Unknown]
  - Acne [Unknown]
  - Dysgeusia [Unknown]
  - Insomnia [Unknown]
  - Abnormal behaviour [Unknown]
  - Tongue coated [Unknown]
  - Amnesia [Unknown]
  - Tongue disorder [Unknown]

NARRATIVE: CASE EVENT DATE: 201602
